FAERS Safety Report 4342016-X (Version None)
Quarter: 2004Q2

REPORT INFORMATION
  Report Type: 
  Country: None (occurrence: None)
  Receive Date: 20040415
  Receipt Date: 20040329
  Transmission Date: 20050107
  Serious: Yes (Other)
  Sender: FDA-Public Use
  Company Number: USA040363416

PATIENT
  Age: 81 Year
  Sex: Female

DRUGS (5)
  1. HUMALOG [Suspect]
     Indication: DIABETES MELLITUS NON-INSULIN-DEPENDENT
     Dates: start: 19960101
  2. HUMULIN R [Suspect]
     Indication: DIABETES MELLITUS NON-INSULIN-DEPENDENT
     Dates: start: 19780101, end: 19960101
  3. HUMULIN N [Suspect]
     Indication: DIABETES MELLITUS NON-INSULIN-DEPENDENT
     Dates: start: 19780101, end: 19960101
  4. PROCRIT (ERYTHROPOIETIN) [Concomitant]
  5. LASIX [Concomitant]

REACTIONS (14)
  - ANOREXIA [None]
  - ASTHMA [None]
  - BLOOD GLUCOSE INCREASED [None]
  - CARDIAC FAILURE [None]
  - COLON CANCER [None]
  - DEMENTIA ALZHEIMER'S TYPE [None]
  - DIALYSIS [None]
  - DRUG INEFFECTIVE [None]
  - GLOMERULONEPHRITIS PROLIFERATIVE [None]
  - HAEMOGLOBIN DECREASED [None]
  - HYPERTENSION [None]
  - OSTEOARTHRITIS [None]
  - RENAL FAILURE [None]
  - ULCER HAEMORRHAGE [None]
